FAERS Safety Report 10089400 (Version 1)
Quarter: 2014Q2

REPORT INFORMATION
  Report Type: Spontaneous
  Country: US (occurrence: None)
  Receive Date: 20140418
  Receipt Date: 20140418
  Transmission Date: 20141212
  Serious: No
  Sender: FDA-Public Use
  Company Number: None

PATIENT
  Age: 68 Year
  Sex: Male

DRUGS (1)
  1. IMBRUVICA [Suspect]
     Route: 048
     Dates: start: 20140326

REACTIONS (3)
  - Back pain [None]
  - Musculoskeletal pain [None]
  - Pollakiuria [None]
